FAERS Safety Report 12562763 (Version 1)
Quarter: 2016Q3

REPORT INFORMATION
  Report Type: Spontaneous
  Country: US (occurrence: US)
  Receive Date: 20160715
  Receipt Date: 20160715
  Transmission Date: 20161109
  Serious: No
  Sender: FDA-Public Use
  Company Number: US-IGSA-GTI003743

PATIENT
  Age: 38 Year
  Sex: Female
  Weight: 67 kg

DRUGS (6)
  1. POTASSIUM /00031402/ [Concomitant]
     Active Substance: POTASSIUM
     Indication: HYPOKALAEMIA
  2. RABAVERT [Suspect]
     Active Substance: RABIES VIRUS STRAIN FLURY LEP ANTIGEN (PROPIOLACTONE INACTIVATED)
     Dates: start: 20151201
  3. LEVOTHYROXINE. [Concomitant]
     Active Substance: LEVOTHYROXINE
     Indication: THYROID HORMONE REPLACEMENT THERAPY
  4. HYPERRAB S/D [Suspect]
     Active Substance: HUMAN RABIES VIRUS IMMUNE GLOBULIN
     Route: 030
     Dates: start: 20151201, end: 20151201
  5. ATENOLOL. [Concomitant]
     Active Substance: ATENOLOL
     Indication: TACHYARRHYTHMIA
  6. ATENOLOL. [Concomitant]
     Active Substance: ATENOLOL
     Indication: HYPERTENSION

REACTIONS (14)
  - Nausea [None]
  - Peripheral swelling [None]
  - Hypoaesthesia [Recovered/Resolved]
  - Muscle twitching [Recovered/Resolved]
  - Heart rate irregular [Recovered/Resolved]
  - Hot flush [Recovered/Resolved]
  - Tinnitus [Not Recovered/Not Resolved]
  - Asthenia [Not Recovered/Not Resolved]
  - Dizziness [Not Recovered/Not Resolved]
  - Confusional state [Recovered/Resolved]
  - Oropharyngeal pain [Recovered/Resolved]
  - Photophobia [Not Recovered/Not Resolved]
  - Sneezing [Recovered/Resolved]
  - Heart rate increased [Recovered/Resolved]

NARRATIVE: CASE EVENT DATE: 20151201
